FAERS Safety Report 11302676 (Version 1)
Quarter: 2015Q3

REPORT INFORMATION
  Report Type: Report from Study
  Country: JP (occurrence: JP)
  Receive Date: 20150723
  Receipt Date: 20150723
  Transmission Date: 20151125
  Serious: No
  Sender: FDA-Public Use
  Company Number: JP-JNJFOC-20130712829

PATIENT
  Age: 44 Year
  Sex: Male
  Weight: 75 kg

DRUGS (18)
  1. NEORAL [Concomitant]
     Active Substance: CYCLOSPORINE
     Indication: PSORIASIS
     Route: 048
     Dates: start: 20120524, end: 20120626
  2. USTEKINUMAB [Suspect]
     Active Substance: USTEKINUMAB
     Indication: PSORIASIS
     Route: 058
     Dates: start: 20120724, end: 20120724
  3. USTEKINUMAB [Suspect]
     Active Substance: USTEKINUMAB
     Indication: PSORIASIS
     Route: 058
     Dates: start: 20130131, end: 20130131
  4. EPADEL S [Concomitant]
     Active Substance: ETHYL ICOSAPENTATE\ICOSAPENT
     Indication: HYPERLIPIDAEMIA
     Route: 048
  5. EPADEL S [Concomitant]
     Active Substance: ETHYL ICOSAPENTATE\ICOSAPENT
     Indication: HYPERLIPIDAEMIA
     Route: 048
  6. DERMOVATE [Concomitant]
     Active Substance: CLOBETASOL
     Indication: PSORIASIS
     Route: 061
     Dates: start: 201010
  7. ANTEBATE [Concomitant]
     Active Substance: BETAMETHASONE DIPROPIONATE
     Indication: PSORIASIS
     Route: 061
     Dates: start: 20130618
  8. USTEKINUMAB [Suspect]
     Active Substance: USTEKINUMAB
     Indication: PSORIASIS
     Route: 058
     Dates: start: 20130716
  9. NEORAL [Concomitant]
     Active Substance: CYCLOSPORINE
     Indication: PSORIASIS
     Route: 048
     Dates: start: 20120823, end: 20120920
  10. RINDERON VG [Concomitant]
     Active Substance: BETAMETHASONE VALERATE\GENTAMICIN SULFATE
     Indication: PSORIASIS
     Route: 061
     Dates: start: 201010, end: 20130618
  11. USTEKINUMAB [Suspect]
     Active Substance: USTEKINUMAB
     Indication: PSORIASIS
     Route: 058
     Dates: start: 20120626, end: 20120626
  12. NEORAL [Concomitant]
     Active Substance: CYCLOSPORINE
     Indication: PSORIASIS
     Route: 048
     Dates: start: 20120626, end: 20120823
  13. USTEKINUMAB [Suspect]
     Active Substance: USTEKINUMAB
     Indication: PSORIASIS
     Route: 058
     Dates: start: 20130423, end: 20130423
  14. NEORAL [Concomitant]
     Active Substance: CYCLOSPORINE
     Indication: PSORIASIS
     Route: 048
     Dates: start: 20120920, end: 20121016
  15. NERISONA [Concomitant]
     Active Substance: DIFLUCORTOLONE VALERATE
     Indication: PSORIASIS
     Route: 061
     Dates: start: 201010
  16. USTEKINUMAB [Suspect]
     Active Substance: USTEKINUMAB
     Indication: PSORIASIS
     Route: 058
     Dates: start: 20121016, end: 20121016
  17. ATARAX-P [Concomitant]
     Active Substance: HYDROXYZINE HYDROCHLORIDE
     Indication: PSORIASIS
     Route: 048
  18. WHITE PETROLATUM [Concomitant]
     Active Substance: PETROLATUM
     Indication: PSORIASIS
     Route: 061
     Dates: start: 201010

REACTIONS (1)
  - Liver disorder [Not Recovered/Not Resolved]

NARRATIVE: CASE EVENT DATE: 20130129
